FAERS Safety Report 5170196-5 (Version None)
Quarter: 2006Q4

REPORT INFORMATION
  Report Type: 
  Country: None (occurrence: None)
  Receive Date: 20061212
  Receipt Date: 20061128
  Transmission Date: 20070319
  Serious: Yes (Other)
  Sender: FDA-Public Use
  Company Number: US-ROCHE-473305

PATIENT
  Sex: Male

DRUGS (2)
  1. PEG-INTERFERON ALFA 2A (RO 25-8310) [Suspect]
     Route: 058
     Dates: start: 20061020
  2. RIBAVIRIN [Suspect]
     Route: 048
     Dates: start: 20061020

REACTIONS (6)
  - DEPRESSION [None]
  - DRY SKIN [None]
  - HAEMATOMA [None]
  - PAIN IN EXTREMITY [None]
  - PURPURA [None]
  - VASCULITIS [None]
